FAERS Safety Report 9060286 (Version 1)
Quarter: 2013Q1

REPORT INFORMATION
  Report Type: Spontaneous
  Country: US (occurrence: None)
  Receive Date: 20130207
  Receipt Date: 20130207
  Transmission Date: 20140127
  Serious: Yes (Hospitalization, Disabling)
  Sender: FDA-Public Use
  Company Number: None

PATIENT
  Sex: Female
  Weight: 90.72 kg

DRUGS (1)
  1. ABILIFY ANTIDEPPRESSANT [Suspect]
     Indication: DEPRESSION
     Dosage: DAILY ORAL  ?2 YRS AGO FOR SEVERAL MONTHS
     Route: 048

REACTIONS (4)
  - Dizziness [None]
  - Fall [None]
  - Gait disturbance [None]
  - Parkinson^s disease [None]
